FAERS Safety Report 5810508-X (Version None)
Quarter: 2008Q3

REPORT INFORMATION
  Report Type: 
  Country: None (occurrence: None)
  Receive Date: 20080715
  Receipt Date: 20080703
  Transmission Date: 20090109
  Serious: Yes (Hospitalization)
  Sender: FDA-Public Use
  Company Number: US-ELI_LILLY_AND_COMPANY-US200807000831

PATIENT
  Sex: Male

DRUGS (12)
  1. BYETTA [Suspect]
     Indication: WEIGHT DECREASED
     Dosage: 5 UG, 2/D
     Route: 058
     Dates: start: 20080501, end: 20080601
  2. BYETTA [Suspect]
     Dosage: 10 UG, 2/D
     Route: 058
     Dates: start: 20080601
  3. DULCOLAX [Concomitant]
     Dosage: UNK, AS NEEDED
     Route: 048
  4. ALLOPURINOL [Concomitant]
     Dosage: UNK, DAILY (1/D)
     Route: 048
  5. BUSPIRONE HCL [Concomitant]
     Dosage: UNK, DAILY (1/D)
     Route: 048
  6. FINASTERIDE [Concomitant]
     Dosage: 5 MG, DAILY (1/D)
     Route: 048
  7. FLOMAX [Concomitant]
     Dosage: 4 MG, DAILY (1/D)
     Route: 048
  8. GABAPENTIN [Concomitant]
  9. HYDROCODONE BITARTRATE [Concomitant]
     Dosage: UNK, AS NEEDED
     Route: 048
  10. METOPROLOL [Concomitant]
     Dosage: 50 MG, DAILY (1/D)
     Route: 048
  11. METFORMIN [Concomitant]
     Dosage: 500 MG, DAILY (1/D)
     Route: 048
     Dates: start: 20080501
  12. PREVACID [Concomitant]
     Dates: end: 20080501

REACTIONS (6)
  - ASTHENIA [None]
  - CHEST PAIN [None]
  - EYE DISORDER [None]
  - FEELING ABNORMAL [None]
  - SINUS CONGESTION [None]
  - VERTIGO [None]
